FAERS Safety Report 10373436 (Version 1)
Quarter: 2014Q3

REPORT INFORMATION
  Report Type: Spontaneous
  Country: US (occurrence: US)
  Receive Date: 20140808
  Receipt Date: 20140808
  Transmission Date: 20150326
  Serious: Yes (Hospitalization)
  Sender: FDA-Public Use
  Company Number: US-BRISTOL-MYERS SQUIBB COMPANY-20617049

PATIENT
  Sex: Male

DRUGS (1)
  1. SPRYCEL (CML) TABS 20 MG [Suspect]
     Active Substance: DASATINIB
     Indication: LEUKAEMIA
     Dates: start: 20130813

REACTIONS (2)
  - Drug dose omission [Unknown]
  - Adverse event [Unknown]
